FAERS Safety Report 14636458 (Version 3)
Quarter: 2018Q2

REPORT INFORMATION
  Report Type: Spontaneous
  Country: IT (occurrence: IT)
  Receive Date: 20180314
  Receipt Date: 20180601
  Transmission Date: 20180711
  Serious: Yes (Other)
  Sender: FDA-Public Use
  Company Number: IT-BAYER-2018-048086

PATIENT
  Age: 14 Year
  Sex: Female

DRUGS (1)
  1. KLAIRA [Suspect]
     Active Substance: DIENOGEST\ETHINYL ESTRADIOL
     Indication: METRORRHAGIA
     Dosage: UNK
     Route: 048
     Dates: start: 201710

REACTIONS (3)
  - Pain [None]
  - Abdominal pain [None]
  - Dysentery [None]
